FAERS Safety Report 4421032-3 (Version None)
Quarter: 2004Q3

REPORT INFORMATION
  Report Type: 
  Country: None (occurrence: None)
  Receive Date: 20040809
  Receipt Date: 20040729
  Transmission Date: 20050211
  Serious: Yes (Hospitalization)
  Sender: FDA-Public Use
  Company Number: JP-GLAXOSMITHKLINE-B0341338A

PATIENT
  Age: 33 Year
  Sex: Male

DRUGS (4)
  1. ZOVIRAX [Suspect]
     Indication: VARICELLA
     Dosage: 250MG THREE TIMES PER DAY
     Route: 042
     Dates: start: 20040708, end: 20040713
  2. SOLETON [Suspect]
     Route: 048
  3. HOMOCLOMIN [Suspect]
     Route: 048
  4. ISALON [Concomitant]
     Route: 048

REACTIONS (1)
  - HEPATIC FUNCTION ABNORMAL [None]
